FAERS Safety Report 8256820-9 (Version None)
Quarter: 2012Q2

REPORT INFORMATION
  Report Type: 
  Country: None (occurrence: None)
  Receive Date: 20120403
  Receipt Date: 20120330
  Transmission Date: 20120825
  Serious: Yes (Other)
  Sender: FDA-Public Use
  Company Number: PHHY2012DE027974

PATIENT
  Sex: Female
  Weight: 83 kg

DRUGS (8)
  1. ZOMETA [Suspect]
     Indication: BONE DISORDER
     Dosage: 4 MG, EVERY 4 WEEKS
     Route: 042
     Dates: start: 20110127
  2. CO-DIOVANE [Concomitant]
     Dosage: UNK UKN, UNK
  3. CALCIUM CARBONATE [Concomitant]
     Dosage: 600 MG, DAILY
     Route: 048
  4. VITAMIN D [Concomitant]
     Dosage: 400 IE, DAILY
     Route: 048
  5. AVASTIN [Concomitant]
     Dosage: UNK UKN, UNK
     Dates: start: 20101025
  6. TAXOL [Concomitant]
     Dosage: UNK UKN, UNK
     Dates: start: 20101025
  7. NAVELBINE [Concomitant]
  8. XELODA [Concomitant]
     Dosage: 4000 MG, UNK
     Dates: start: 20110530

REACTIONS (1)
  - OSTEONECROSIS OF JAW [None]
